FAERS Safety Report 23683855 (Version 2)
Quarter: 2024Q2

REPORT INFORMATION
  Report Type: Spontaneous
  Country: BR (occurrence: BR)
  Receive Date: 20240328
  Receipt Date: 20240429
  Transmission Date: 20240716
  Serious: Yes (Death, Other)
  Sender: FDA-Public Use
  Company Number: BR-BEIGENE-BGN-2024-004690

PATIENT

DRUGS (1)
  1. BRUKINSA [Suspect]
     Active Substance: ZANUBRUTINIB
     Indication: Mantle cell lymphoma refractory
     Dosage: UNK
     Dates: start: 202305

REACTIONS (3)
  - Myocardial infarction [Fatal]
  - Disease progression [Unknown]
  - Drug ineffective [Unknown]
